FAERS Safety Report 16246787 (Version 1)
Quarter: 2019Q2

REPORT INFORMATION
  Report Type: Spontaneous
  Country: DE (occurrence: DE)
  Receive Date: 20190427
  Receipt Date: 20190427
  Transmission Date: 20190711
  Serious: Yes (Other)
  Sender: FDA-Public Use
  Company Number: DE-ACCORD-124576

PATIENT
  Sex: Male

DRUGS (4)
  1. LISINOPRIL. [Concomitant]
     Active Substance: LISINOPRIL
  2. LEVOTHYROXINE. [Concomitant]
     Active Substance: LEVOTHYROXINE
  3. FINASTERIDE. [Suspect]
     Active Substance: FINASTERIDE
     Indication: BENIGN PROSTATIC HYPERPLASIA
  4. HYPERICUM [Interacting]
     Active Substance: ST. JOHN^S WORT
     Indication: ANTIDEPRESSANT THERAPY
     Dosage: DAILY DOSE: 900 MG MILLIGRAM(S) EVERY DAY

REACTIONS (4)
  - Drug interaction [Unknown]
  - Drug level decreased [Unknown]
  - Drug ineffective [Unknown]
  - Prostatic specific antigen increased [Unknown]
